FAERS Safety Report 17278705 (Version 2)
Quarter: 2020Q1

REPORT INFORMATION
  Report Type: Spontaneous
  Country: NO (occurrence: NO)
  Receive Date: 20200116
  Receipt Date: 20200217
  Transmission Date: 20200409
  Serious: Yes (Death, Other)
  Sender: FDA-Public Use
  Company Number: NO-PFIZER INC-2020020397

PATIENT
  Age: 75 Year
  Sex: Male

DRUGS (1)
  1. CYKLOKAPRON [Suspect]
     Active Substance: TRANEXAMIC ACID
     Dosage: 1 G, UNK
     Route: 042

REACTIONS (2)
  - Mental impairment [Unknown]
  - Respiratory failure [Fatal]
